FAERS Safety Report 16091694 (Version 2)
Quarter: 2019Q2

REPORT INFORMATION
  Report Type: Report from Study
  Country: AU (occurrence: AU)
  Receive Date: 20190319
  Receipt Date: 20190404
  Transmission Date: 20190711
  Serious: Yes (Hospitalization)
  Sender: FDA-Public Use
  Company Number: AU-JNJFOC-20190305025

PATIENT
  Age: 83 Year
  Sex: Female

DRUGS (1)
  1. STELARA [Suspect]
     Active Substance: USTEKINUMAB
     Indication: CROHN^S DISEASE
     Route: 042
     Dates: start: 20190222

REACTIONS (6)
  - Ataxia [Recovering/Resolving]
  - Dizziness [Not Recovered/Not Resolved]
  - Myocardial infarction [Recovering/Resolving]
  - Cystitis [Recovering/Resolving]
  - Hypotension [Not Recovered/Not Resolved]
  - Lethargy [Not Recovered/Not Resolved]

NARRATIVE: CASE EVENT DATE: 2019
